FAERS Safety Report 24572261 (Version 4)
Quarter: 2024Q4

REPORT INFORMATION
  Report Type: Spontaneous
  Country: US (occurrence: US)
  Receive Date: 20241101
  Receipt Date: 20241126
  Transmission Date: 20250114
  Serious: No
  Sender: PFIZER
  Company Number: US-PFIZER INC-PV202400141433

PATIENT
  Age: 55 Year
  Sex: Female

DRUGS (1)
  1. IBRANCE [Suspect]
     Active Substance: PALBOCICLIB
     Dosage: 100 MG, CYCLIC, (ON DAY 1-21 THEN 7 DAYS OFF)

REACTIONS (3)
  - Fatigue [Not Recovered/Not Resolved]
  - Full blood count decreased [Unknown]
  - Rash [Recovered/Resolved]
